FAERS Safety Report 5356043-7 (Version None)
Quarter: 2007Q2

REPORT INFORMATION
  Report Type: 
  Country: None (occurrence: None)
  Receive Date: 20070529
  Receipt Date: 20061213
  Transmission Date: 20071010
  Serious: Yes (Other)
  Sender: FDA-Public Use
  Company Number: 2006131959

PATIENT
  Age: 43 Year
  Sex: Female
  Weight: 82.6 kg

DRUGS (5)
  1. EXUBERA [Suspect]
     Indication: DIABETES MELLITUS
     Dosage: SEE IMAGE
     Route: 055
     Dates: start: 20061017
  2. EXUBERA [Suspect]
  3. ZYRTEC [Concomitant]
  4. RHINOCORT [Concomitant]
  5. LANTUS [Concomitant]

REACTIONS (3)
  - BLOOD GLUCOSE INCREASED [None]
  - DEVICE MALFUNCTION [None]
  - DRUG INEFFECTIVE [None]
